FAERS Safety Report 5081805-3 (Version None)
Quarter: 2006Q3

REPORT INFORMATION
  Report Type: 
  Country: None (occurrence: None)
  Receive Date: 20060816
  Receipt Date: 20060807
  Transmission Date: 20061208
  Serious: Yes (Other)
  Sender: FDA-Public Use
  Company Number: FR-GLAXOSMITHKLINE-B0433970A

PATIENT
  Age: 6 Month
  Sex: Female
  Weight: 5.5 kg

DRUGS (9)
  1. ACYCLOVIR [Suspect]
     Indication: ANTIVIRAL PROPHYLAXIS
     Dosage: 250MGM2 SEE DOSAGE TEXT
     Route: 065
  2. ANTILYMPHOCYTE SERUM [Concomitant]
     Indication: IMMUNOSUPPRESSION
     Route: 065
  3. AZATHIOPRINE [Concomitant]
     Indication: IMMUNOSUPPRESSION
     Route: 065
  4. STEROIDS [Concomitant]
     Indication: IMMUNOSUPPRESSION
     Route: 065
  5. NEORAL [Concomitant]
     Indication: IMMUNOSUPPRESSION
     Dosage: 10MGK PER DAY
     Route: 065
  6. TICARCILLIN + CLAVULANIC ACID [Concomitant]
     Indication: PROPHYLAXIS
     Route: 065
  7. FLUCONAZOLE [Concomitant]
     Indication: ANTIVIRAL PROPHYLAXIS
     Dosage: 3MGK PER DAY
     Route: 065
  8. FENTANYL [Concomitant]
     Indication: SEDATION
     Route: 065
  9. MIDAZOLAM HYDROCHLORIDE [Concomitant]
     Indication: SEDATION
     Route: 065

REACTIONS (6)
  - AGITATION [None]
  - CHOREOATHETOSIS [None]
  - COMA [None]
  - EYE MOVEMENT DISORDER [None]
  - NEUROLOGICAL SYMPTOM [None]
  - NEUROTOXICITY [None]
